FAERS Safety Report 6249561-0 (Version None)
Quarter: 2009Q2

REPORT INFORMATION
  Report Type: 
  Country: None (occurrence: None)
  Receive Date: 20090625
  Receipt Date: 20090625
  Transmission Date: 20091009
  Serious: Yes (Life-Threatening, Hospitalization)
  Sender: FDA-Public Use
  Company Number: None

PATIENT
  Age: 21 Year
  Sex: Male
  Weight: 74.8435 kg

DRUGS (2)
  1. HALDOL [Suspect]
     Dosage: 10 MG DAILY FOR 4 DAYS IM
     Route: 030
     Dates: start: 20081016, end: 20081019
  2. ZYPREXA [Suspect]
     Dosage: 20 MG DAILY BUCCAL 4-DAYS AND IM ON 1-1-09
     Route: 002
     Dates: start: 20081016, end: 20081019

REACTIONS (13)
  - BRAIN INJURY [None]
  - COGNITIVE DISORDER [None]
  - DIABETES MELLITUS [None]
  - DROOLING [None]
  - EXTRAPYRAMIDAL DISORDER [None]
  - MOVEMENT DISORDER [None]
  - MUSCLE RIGIDITY [None]
  - MUTISM [None]
  - NERVE INJURY [None]
  - NEUROLEPTIC MALIGNANT SYNDROME [None]
  - PARALYSIS [None]
  - RASH [None]
  - TARDIVE DYSKINESIA [None]
